FAERS Safety Report 5221740-0 (Version None)
Quarter: 2007Q1

REPORT INFORMATION
  Report Type: 
  Country: None (occurrence: None)
  Receive Date: 20070129
  Receipt Date: 20070116
  Transmission Date: 20070707
  Serious: Yes (Other)
  Sender: FDA-Public Use
  Company Number: US-KINGPHARMUSA00001-K200700033

PATIENT

DRUGS (3)
  1. SKELAXIN [Suspect]
     Indication: MUSCLE RELAXANT THERAPY
     Dosage: 12 G, SINGLE
     Dates: start: 20061220, end: 20061220
  2. PEG-INTRON [Suspect]
     Indication: HEPATITIS C
     Route: 058
     Dates: start: 20061006
  3. RIBAVIRIN [Suspect]
     Indication: HEPATITIS C
     Dosage: UNK, UNK
     Route: 048
     Dates: start: 20061006

REACTIONS (4)
  - ALCOHOL USE [None]
  - DRUG ABUSER [None]
  - OVERDOSE [None]
  - SUICIDE ATTEMPT [None]
